FAERS Safety Report 12979790 (Version 2)
Quarter: 2016Q4

REPORT INFORMATION
  Report Type: Spontaneous
  Country: SE (occurrence: SE)
  Receive Date: 20161128
  Receipt Date: 20161222
  Transmission Date: 20170207
  Serious: No
  Sender: FDA-Public Use
  Company Number: SE-ASTELLAS-2016US040853

PATIENT
  Sex: Female

DRUGS (1)
  1. PROTOPIC [Suspect]
     Active Substance: TACROLIMUS
     Indication: DERMATITIS ATOPIC
     Dosage: UNK UNK, UNKNOWN FREQ.
     Route: 065
     Dates: start: 20151218, end: 201602

REACTIONS (2)
  - Eczema [Recovered/Resolved]
  - Hypersensitivity [Unknown]

NARRATIVE: CASE EVENT DATE: 201602
